FAERS Safety Report 6639398-2 (Version None)
Quarter: 2010Q1

REPORT INFORMATION
  Report Type: 
  Country: None (occurrence: None)
  Receive Date: 20100318
  Receipt Date: 20100315
  Transmission Date: 20100710
  Serious: Yes (Hospitalization)
  Sender: FDA-Public Use
  Company Number: US-BIOGENIDEC-2010BI007167

PATIENT
  Sex: Female
  Weight: 72 kg

DRUGS (3)
  1. AVONEX [Suspect]
     Indication: MULTIPLE SCLEROSIS
     Route: 030
     Dates: start: 19960101, end: 20030101
  2. AVONEX [Suspect]
     Route: 030
     Dates: start: 20030101
  3. SYNTHROID [Concomitant]
     Indication: POST PROCEDURAL HYPOTHYROIDISM
     Route: 048

REACTIONS (4)
  - FEELING COLD [None]
  - GOITRE [None]
  - PAIN IN EXTREMITY [None]
  - POST PROCEDURAL HYPOTHYROIDISM [None]
